FAERS Safety Report 7816024-8 (Version None)
Quarter: 2011Q4

REPORT INFORMATION
  Report Type: 
  Country: None (occurrence: None)
  Receive Date: 20111014
  Receipt Date: 20110921
  Transmission Date: 20120403
  Serious: Yes (Other)
  Sender: FDA-Public Use
  Company Number: HR-ROCHE-1000244

PATIENT
  Age: 51 Year
  Sex: Female

DRUGS (4)
  1. FLUOROURACIL [Concomitant]
  2. IRINOTECAN HCL [Concomitant]
     Dates: start: 20081119, end: 20091007
  3. LEUCOVORIN CALCIUM [Concomitant]
     Dates: start: 20081119, end: 20091007
  4. AVASTIN [Suspect]
     Indication: COLON CANCER METASTATIC
     Route: 042
     Dates: start: 20081119, end: 20091111

REACTIONS (2)
  - RENAL FAILURE ACUTE [None]
  - PROTEINURIA [None]
